FAERS Safety Report 22399443 (Version 3)
Quarter: 2023Q4

REPORT INFORMATION
  Report Type: Report from Study
  Country: US (occurrence: US)
  Receive Date: 20230602
  Receipt Date: 20231115
  Transmission Date: 20240109
  Serious: Yes (Other)
  Sender: FDA-Public Use
  Company Number: US-REGENERON PHARMACEUTICALS, INC.-2023-072239

PATIENT
  Sex: Female

DRUGS (1)
  1. CEMIPLIMAB [Suspect]
     Active Substance: CEMIPLIMAB
     Indication: Basal cell carcinoma
     Dosage: 350 MG, Q3W
     Route: 042
     Dates: start: 20230403, end: 20230628

REACTIONS (18)
  - Eye pruritus [Recovered/Resolved]
  - Ear pruritus [Recovered/Resolved]
  - Blood iron decreased [Recovering/Resolving]
  - Liver disorder [Recovered/Resolved]
  - Gastrointestinal inflammation [Unknown]
  - Headache [Recovered/Resolved]
  - Rash [Recovered/Resolved]
  - Fatigue [Not Recovered/Not Resolved]
  - Pain in extremity [Recovered/Resolved]
  - Arthritis [Not Recovered/Not Resolved]
  - Gastritis [Unknown]
  - Diarrhoea [Not Recovered/Not Resolved]
  - Myositis [Not Recovered/Not Resolved]
  - Arthralgia [Unknown]
  - Arthralgia [Not Recovered/Not Resolved]
  - Adverse event [Unknown]
  - Anxiety [Unknown]
  - Diarrhoea [Unknown]

NARRATIVE: CASE EVENT DATE: 20230403
